FAERS Safety Report 8473921-0 (Version None)
Quarter: 2012Q2

REPORT INFORMATION
  Report Type: 
  Country: None (occurrence: None)
  Receive Date: 20120628
  Receipt Date: 20120302
  Transmission Date: 20120825
  Serious: Yes (Life-Threatening)
  Sender: FDA-Public Use
  Company Number: US-MYLANLABS-2012S1002526

PATIENT
  Age: 33 Year
  Sex: Male
  Weight: 67.7 kg

DRUGS (4)
  1. LORAZEPAM [Concomitant]
     Indication: AGITATION
  2. LITHIUM CARBONATE [Concomitant]
     Dates: end: 20120125
  3. CLOZAPINE [Suspect]
     Indication: SCHIZOPHRENIA
     Route: 048
     Dates: start: 20111216, end: 20120201
  4. PROPRANOLOL [Concomitant]

REACTIONS (3)
  - LEUKOPENIA [None]
  - AGRANULOCYTOSIS [None]
  - GRANULOCYTOPENIA [None]
